FAERS Safety Report 12769456 (Version 2)
Quarter: 2016Q4

REPORT INFORMATION
  Report Type: Spontaneous
  Country: US (occurrence: US)
  Receive Date: 20160921
  Receipt Date: 20161114
  Transmission Date: 20170207
  Serious: No
  Sender: FDA-Public Use
  Company Number: PHEH2016US024115

PATIENT
  Sex: Female
  Weight: 66.67 kg

DRUGS (1)
  1. ESTRADIOL. [Suspect]
     Active Substance: ESTRADIOL
     Indication: PRODUCT USED FOR UNKNOWN INDICATION
     Dosage: UNK UNK, QW2
     Route: 062

REACTIONS (3)
  - Sleep disorder [Recovered/Resolved]
  - Product quality issue [Unknown]
  - Hot flush [Recovered/Resolved]
